FAERS Safety Report 22400204 (Version 1)
Quarter: 2023Q2

REPORT INFORMATION
  Report Type: Spontaneous
  Country: US (occurrence: None)
  Receive Date: 20230601
  Receipt Date: 20230601
  Transmission Date: 20230722
  Serious: Yes (Hospitalization)
  Sender: FDA-Public Use
  Company Number: None

PATIENT
  Sex: Male

DRUGS (1)
  1. ABIRATERONE [Suspect]
     Active Substance: ABIRATERONE
     Route: 048

REACTIONS (7)
  - Gait disturbance [None]
  - Inguinal hernia [None]
  - Prostate cancer metastatic [None]
  - Skin cancer [None]
  - Off label use [None]
  - Metastases to bone [None]
  - Spinal stenosis [None]
